FAERS Safety Report 6752251-9 (Version None)
Quarter: 2010Q2

REPORT INFORMATION
  Report Type: 
  Country: None (occurrence: None)
  Receive Date: 20100601
  Receipt Date: 20100601
  Transmission Date: 20101027
  Serious: Yes (Hospitalization, Other)
  Sender: FDA-Public Use
  Company Number: None

PATIENT
  Age: 48 Year
  Sex: Male
  Weight: 80.7403 kg

DRUGS (1)
  1. NODOZ [Suspect]
     Dosage: HALF TABLET PO ; ONE TABLET TWO DAYS LATER PO
     Route: 048

REACTIONS (1)
  - HERPES ZOSTER [None]
